FAERS Safety Report 17693706 (Version 1)
Quarter: 2020Q2

REPORT INFORMATION
  Report Type: Spontaneous
  Country: CA (occurrence: CA)
  Receive Date: 20200422
  Receipt Date: 20200422
  Transmission Date: 20200714
  Serious: Yes (Other)
  Sender: FDA-Public Use
  Company Number: CA-PFIZER INC-2020158354

PATIENT
  Age: 92 Year
  Sex: Male

DRUGS (3)
  1. XARELTO [Suspect]
     Active Substance: RIVAROXABAN
     Dosage: 20 MG, 1X/DAY
  2. IBUPROFEN. [Suspect]
     Active Substance: IBUPROFEN
     Dosage: 400 MG, 3X/DAY
  3. NAPROXEN. [Suspect]
     Active Substance: NAPROXEN
     Dosage: 250 MG, 3X/DAY

REACTIONS (2)
  - Duodenal ulcer [Recovered/Resolved]
  - Gastritis erosive [Recovered/Resolved]
